FAERS Safety Report 24694913 (Version 1)
Quarter: 2024Q4

REPORT INFORMATION
  Report Type: Spontaneous
  Country: US (occurrence: None)
  Receive Date: 20241203
  Receipt Date: 20241203
  Transmission Date: 20250114
  Serious: Yes (Life-Threatening, Hospitalization)
  Sender: Public
  Company Number: None

PATIENT
  Age: 47 Year
  Sex: Male
  Weight: 77 kg

DRUGS (5)
  1. FLUOXETINE HYDROCHLORIDE [Suspect]
     Active Substance: FLUOXETINE HYDROCHLORIDE
     Indication: Mood swings
     Dosage: FREQUENCY : DAILY;?
     Route: 048
  2. FLUOXETINE HYDROCHLORIDE [Suspect]
     Active Substance: FLUOXETINE HYDROCHLORIDE
     Indication: Anxiety
  3. BUPROPION [Suspect]
     Active Substance: BUPROPION
  4. PALIPERIDONE [Suspect]
     Active Substance: PALIPERIDONE
  5. QUETIAPINE [Suspect]
     Active Substance: QUETIAPINE

REACTIONS (9)
  - Inappropriate antidiuretic hormone secretion [None]
  - Anxiety [None]
  - Hallucination, auditory [None]
  - Withdrawal syndrome [None]
  - Symptom recurrence [None]
  - Sedation complication [None]
  - Akathisia [None]
  - Adverse drug reaction [None]
  - Therapeutic response decreased [None]

NARRATIVE: CASE EVENT DATE: 20241009
